FAERS Safety Report 21779410 (Version 3)
Quarter: 2023Q1

REPORT INFORMATION
  Report Type: Report from Study
  Country: ES (occurrence: ES)
  Receive Date: 20221226
  Receipt Date: 20230110
  Transmission Date: 20230417
  Serious: Yes (Hospitalization)
  Sender: FDA-Public Use
  Company Number: ES-BRISTOL-MYERS SQUIBB COMPANY-2022-157750

PATIENT
  Age: 71 Year
  Sex: Female
  Weight: 51.4 kg

DRUGS (26)
  1. PACLITAXEL [Suspect]
     Active Substance: PACLITAXEL
     Indication: Ductal adenocarcinoma of pancreas
     Dosage: CYCLICAL, INFUSION
     Route: 042
     Dates: start: 20220818, end: 20220818
  2. PACLITAXEL [Suspect]
     Active Substance: PACLITAXEL
     Route: 042
     Dates: start: 20220825, end: 20220927
  3. PACLITAXEL [Suspect]
     Active Substance: PACLITAXEL
     Route: 042
     Dates: start: 20220825, end: 20220927
  4. PACLITAXEL [Suspect]
     Active Substance: PACLITAXEL
     Dosage: INFUSION
     Route: 042
     Dates: start: 20221004, end: 20221018
  5. PACLITAXEL [Suspect]
     Active Substance: PACLITAXEL
     Dosage: C5D1
     Route: 042
     Dates: start: 20221221, end: 20221221
  6. PEMBROLIZUMAB [Suspect]
     Active Substance: PEMBROLIZUMAB
     Indication: Ductal adenocarcinoma of pancreas
     Dosage: CYCLE 1
     Route: 042
     Dates: start: 20220818, end: 20220818
  7. PEMBROLIZUMAB [Suspect]
     Active Substance: PEMBROLIZUMAB
     Dosage: CYCLE 4
     Route: 042
     Dates: start: 20221018
  8. PEMBROLIZUMAB [Suspect]
     Active Substance: PEMBROLIZUMAB
     Dosage: CYCLE 5
     Route: 042
     Dates: start: 20221221, end: 20221221
  9. GEMCITABINE [Suspect]
     Active Substance: GEMCITABINE
     Indication: Ductal adenocarcinoma of pancreas
     Dosage: INFUSION
     Route: 042
     Dates: start: 20220818, end: 20220818
  10. GEMCITABINE [Suspect]
     Active Substance: GEMCITABINE
     Dosage: INFUSION
     Route: 042
     Dates: start: 20220825, end: 20220927
  11. GEMCITABINE [Suspect]
     Active Substance: GEMCITABINE
     Dosage: INFUSION
     Route: 042
     Dates: start: 20221004, end: 20221018
  12. GEMCITABINE [Suspect]
     Active Substance: GEMCITABINE
     Dosage: CYCLE 5
     Route: 042
     Dates: start: 20221221, end: 20221221
  13. SULFAMETHOXAZOLE\TRIMETHOPRIM [Suspect]
     Active Substance: SULFAMETHOXAZOLE\TRIMETHOPRIM
     Indication: Prophylaxis
  14. PANCRELIPASE [Concomitant]
     Active Substance: PANCRELIPASE
     Indication: Product used for unknown indication
     Dates: start: 202106
  15. CARVEDILOL [Concomitant]
     Active Substance: CARVEDILOL
     Indication: Product used for unknown indication
     Dates: start: 2022
  16. METHYLPREDNISOLONE [Concomitant]
     Active Substance: METHYLPREDNISOLONE
     Indication: Product used for unknown indication
     Dates: start: 20221025, end: 20221125
  17. SULFAMETHOXAZOLE\TRIMETHOPRIM [Concomitant]
     Active Substance: SULFAMETHOXAZOLE\TRIMETHOPRIM
     Indication: Product used for unknown indication
     Dates: start: 20221111, end: 20221117
  18. ENTRESTO [Concomitant]
     Active Substance: SACUBITRIL\VALSARTAN
     Indication: Product used for unknown indication
     Dates: start: 20221111
  19. HIBOR [Concomitant]
     Indication: Product used for unknown indication
     Dates: start: 20221111
  20. PANTOPRAZOLE [Concomitant]
     Active Substance: PANTOPRAZOLE
     Indication: Product used for unknown indication
     Dates: start: 20221111
  21. FOLIC ACID [Concomitant]
     Active Substance: FOLIC ACID
     Indication: Product used for unknown indication
     Dates: start: 20221115
  22. DIBEN DRINK [Concomitant]
     Indication: Product used for unknown indication
     Dates: start: 20221116
  23. CASPOFUNGIN [Concomitant]
     Active Substance: CASPOFUNGIN
     Indication: Product used for unknown indication
     Dates: start: 20221117
  24. CLINDAMYCIN [Concomitant]
     Active Substance: CLINDAMYCIN
     Indication: Product used for unknown indication
     Dates: start: 20221117
  25. METOCLOPRAMIDE HYDROCHLORIDE [Concomitant]
     Active Substance: METOCLOPRAMIDE HYDROCHLORIDE
     Indication: Product used for unknown indication
     Dates: start: 20221117
  26. NYSTATIN [Concomitant]
     Active Substance: NYSTATIN
     Indication: Product used for unknown indication
     Dates: start: 20221118

REACTIONS (1)
  - Hypertransaminasaemia [Recovering/Resolving]

NARRATIVE: CASE EVENT DATE: 20221210
